FAERS Safety Report 22660305 (Version 1)
Quarter: 2023Q2

REPORT INFORMATION
  Report Type: Spontaneous
  Country: GB (occurrence: GB)
  Receive Date: 20230630
  Receipt Date: 20230630
  Transmission Date: 20230722
  Serious: No
  Sender: FDA-Public Use
  Company Number: GB-JAZZ PHARMACEUTICALS-2023-GB-012082

PATIENT
  Sex: Male

DRUGS (2)
  1. CANNABIDIOL [Suspect]
     Active Substance: CANNABIDIOL
     Indication: Product used for unknown indication
     Dosage: UNK
  2. DEPAKOTE [Suspect]
     Active Substance: DIVALPROEX SODIUM
     Indication: Product used for unknown indication
     Dosage: UNK

REACTIONS (2)
  - Physical assault [Unknown]
  - Diarrhoea [Unknown]
